FAERS Safety Report 18850697 (Version 2)
Quarter: 2022Q3

REPORT INFORMATION
  Report Type: Report from Study
  Country: MX (occurrence: MX)
  Receive Date: 20210204
  Receipt Date: 20220916
  Transmission Date: 20221027
  Serious: Yes (Other)
  Sender: FDA-Public Use
  Company Number: MX-NOVARTISPH-PHHY2018MX066830

PATIENT
  Age: 65 Year
  Sex: Female
  Weight: 66 kg

DRUGS (13)
  1. METFORMIN HYDROCHLORIDE\VILDAGLIPTIN [Suspect]
     Active Substance: METFORMIN HYDROCHLORIDE\VILDAGLIPTIN
     Indication: Diabetes mellitus
     Dosage: 2 DF (METFORMIN 500 MG, VILDAGLIPTIN 50 MG),QD
     Route: 048
  2. METFORMIN HYDROCHLORIDE\VILDAGLIPTIN [Suspect]
     Active Substance: METFORMIN HYDROCHLORIDE\VILDAGLIPTIN
     Indication: Blood glucose increased
     Dosage: 2 DF, QD (METFORMIN 850 MG, VILDAGLIPTIN 50 MG)
     Route: 048
  3. METFORMIN HYDROCHLORIDE\VILDAGLIPTIN [Suspect]
     Active Substance: METFORMIN HYDROCHLORIDE\VILDAGLIPTIN
     Dosage: 2 DF (METFORMIN 500 MG, VILDAGLIPTIN 50 MG), QD
     Route: 048
  4. METFORMIN HYDROCHLORIDE\VILDAGLIPTIN [Suspect]
     Active Substance: METFORMIN HYDROCHLORIDE\VILDAGLIPTIN
     Dosage: 3 DF (METFORMIN 500 MG, VILDAGLIPTIN 50 MG), QD
     Route: 048
  5. METFORMIN HYDROCHLORIDE\VILDAGLIPTIN [Suspect]
     Active Substance: METFORMIN HYDROCHLORIDE\VILDAGLIPTIN
     Dosage: 2 DF, Q12H
     Route: 048
     Dates: start: 201701
  6. METFORMIN HYDROCHLORIDE\VILDAGLIPTIN [Suspect]
     Active Substance: METFORMIN HYDROCHLORIDE\VILDAGLIPTIN
     Dosage: 2 DF, QD (50/850 IN MORNINGS AND GALVUS MET 50/500 IN AFTERNOON)
     Route: 048
     Dates: start: 2019
  7. METFORMIN HYDROCHLORIDE\VILDAGLIPTIN [Suspect]
     Active Substance: METFORMIN HYDROCHLORIDE\VILDAGLIPTIN
     Dosage: 50/850 MG IN THE MORNING
     Route: 065
  8. METFORMIN HYDROCHLORIDE\VILDAGLIPTIN [Suspect]
     Active Substance: METFORMIN HYDROCHLORIDE\VILDAGLIPTIN
     Dosage: 50/500 AT NIGHT
     Route: 065
  9. METFORMIN HYDROCHLORIDE\VILDAGLIPTIN [Suspect]
     Active Substance: METFORMIN HYDROCHLORIDE\VILDAGLIPTIN
     Dosage: 0.5 DOSAGE FORM (50/850 TABLET AT NIGHT)
     Route: 065
  10. CAPTOPRIL [Concomitant]
     Active Substance: CAPTOPRIL
     Indication: Hypertension
     Dosage: 2 DF, QD (LIKE 7 YEARS AGO) (1 IN THE MORNING AND 1 IN THE AFTERNOON)
     Route: 048
  11. ASPIRIN [Concomitant]
     Active Substance: ASPIRIN
     Indication: Blood pressure increased
     Dosage: 1 DF, QD (UNKNOWN DATE IN MAY)
     Route: 065
  12. AMARYL [Concomitant]
     Active Substance: GLIMEPIRIDE
     Indication: Product used for unknown indication
     Dosage: 2 MG, QD
     Route: 065
  13. DIMEFOR [Concomitant]
     Indication: Product used for unknown indication
     Dosage: 0.5 DF, QD (IN THE AFTERNOON)
     Route: 065
     Dates: start: 201406

REACTIONS (9)
  - Angina pectoris [Recovered/Resolved]
  - Abdominal discomfort [Unknown]
  - Gastritis [Recovering/Resolving]
  - Feeling abnormal [Unknown]
  - Blood glucose fluctuation [Recovering/Resolving]
  - Diarrhoea [Recovered/Resolved]
  - Fear [Unknown]
  - Intentional overdose [Not Recovered/Not Resolved]
  - Wrong technique in product usage process [Not Recovered/Not Resolved]

NARRATIVE: CASE EVENT DATE: 20171101
